FAERS Safety Report 7546748-1 (Version None)
Quarter: 2011Q2

REPORT INFORMATION
  Report Type: 
  Country: None (occurrence: None)
  Receive Date: 20110614
  Receipt Date: 20100630
  Transmission Date: 20111010
  Serious: Yes (Death)
  Sender: FDA-Public Use
  Company Number: B0723418A

PATIENT
  Age: 9 Year
  Sex: Female

DRUGS (4)
  1. CYTARABINE [Concomitant]
     Route: 065
  2. CLOFARABINE [Concomitant]
     Route: 065
  3. METHOTREXATE [Concomitant]
  4. CEFTAZIDIME [Suspect]
     Route: 065

REACTIONS (2)
  - PALMAR-PLANTAR ERYTHRODYSAESTHESIA SYNDROME [None]
  - NEUROTOXICITY [None]
